FAERS Safety Report 6696166-3 (Version None)
Quarter: 2010Q2

REPORT INFORMATION
  Report Type: 
  Country: None (occurrence: None)
  Receive Date: 20100426
  Receipt Date: 20090610
  Transmission Date: 20101027
  Serious: Yes (Disabling)
  Sender: FDA-Public Use
  Company Number: A0785052A

PATIENT
  Age: 50 Year
  Sex: Female

DRUGS (2)
  1. AMERGE [Suspect]
     Indication: MIGRAINE
     Dosage: 2.5MG SINGLE DOSE
     Route: 048
     Dates: start: 20090501
  2. LEVOTHYROXINE [Concomitant]

REACTIONS (3)
  - DERMATITIS CONTACT [None]
  - RASH [None]
  - URTICARIA [None]
